FAERS Safety Report 7460797-3 (Version None)
Quarter: 2011Q2

REPORT INFORMATION
  Report Type: 
  Country: None (occurrence: None)
  Receive Date: 20110427
  Receipt Date: 20110415
  Transmission Date: 20111010
  Serious: Yes (Death, Hospitalization)
  Sender: FDA-Public Use
  Company Number: 2011AC000027

PATIENT
  Age: 79 Year
  Sex: Male

DRUGS (11)
  1. PROTONIX [Concomitant]
  2. LISINOPRIL [Concomitant]
  3. ZOSYN [Concomitant]
  4. VICODIN [Concomitant]
  5. DIGOXIN [Suspect]
     Indication: CARDIAC FAILURE
     Dosage: 0.250 MG;QD;PO
     Route: 048
     Dates: start: 20080401, end: 20080501
  6. LORAZEPAM [Concomitant]
  7. LASIX [Concomitant]
  8. FOSINOPRIL SODIUM [Concomitant]
  9. BENADRYL [Concomitant]
  10. DILAUDID [Concomitant]
  11. DIGIBIND [Concomitant]

REACTIONS (26)
  - HYPOKALAEMIA [None]
  - PERIPHERAL VASCULAR DISORDER [None]
  - VENTRICULAR TACHYCARDIA [None]
  - HIATUS HERNIA [None]
  - ATRIOVENTRICULAR BLOCK FIRST DEGREE [None]
  - IMPAIRED HEALING [None]
  - RENAL FAILURE ACUTE [None]
  - CHRONIC OBSTRUCTIVE PULMONARY DISEASE [None]
  - HYPOCALCAEMIA [None]
  - DIARRHOEA [None]
  - BLOOD PRESSURE DECREASED [None]
  - SINUS BRADYCARDIA [None]
  - CONFUSIONAL STATE [None]
  - SEPSIS [None]
  - PNEUMONIA ASPIRATION [None]
  - PHARYNGOESOPHAGEAL DIVERTICULUM [None]
  - TOXICITY TO VARIOUS AGENTS [None]
  - BIFASCICULAR BLOCK [None]
  - DYSPHAGIA [None]
  - CLOSTRIDIUM DIFFICILE COLITIS [None]
  - RENAL FAILURE [None]
  - THROMBOCYTOPENIA [None]
  - HYPOTENSION [None]
  - HYPOMAGNESAEMIA [None]
  - PLEURAL EFFUSION [None]
  - BRADYCARDIA [None]
